FAERS Safety Report 9206629 (Version 3)
Quarter: 2013Q3

REPORT INFORMATION
  Report Type: Spontaneous
  Country: DE (occurrence: DE)
  Receive Date: 20130403
  Receipt Date: 20130702
  Transmission Date: 20140515
  Serious: Yes (Life-Threatening, Other)
  Sender: FDA-Public Use
  Company Number: DE-B.I. PHARMACEUTICALS,INC./RIDGEFIELD-2013-DE-00983DE

PATIENT
  Sex: Male
  Weight: 86 kg

DRUGS (4)
  1. PRADAXA [Suspect]
     Indication: AORTIC VALVE REPLACEMENT
     Dosage: 300 MG
     Dates: start: 20120201, end: 20120901
  2. RAMIPRIL [Concomitant]
     Dosage: 1 ANZ
  3. METOPROLOL [Concomitant]
     Dosage: 42.5 MG
  4. COUMARIN [Concomitant]
     Dosage: RELATED TO INR

REACTIONS (6)
  - Cerebrovascular accident [Recovered/Resolved with Sequelae]
  - Cerebral infarction [Recovered/Resolved with Sequelae]
  - Nervous system disorder [Recovered/Resolved with Sequelae]
  - Facial paresis [Recovered/Resolved with Sequelae]
  - Dysarthria [Recovered/Resolved with Sequelae]
  - Disorientation [Recovered/Resolved with Sequelae]
